FAERS Safety Report 14928776 (Version 2)
Quarter: 2018Q2

REPORT INFORMATION
  Report Type: Spontaneous
  Country: US (occurrence: US)
  Receive Date: 20180523
  Receipt Date: 20180607
  Transmission Date: 20180711
  Serious: No
  Sender: FDA-Public Use
  Company Number: US-BAYER-2018-095327

PATIENT
  Age: 68 Year
  Sex: Female

DRUGS (1)
  1. CLIMARA PRO [Suspect]
     Active Substance: ESTRADIOL\LEVONORGESTREL
     Indication: HORMONE REPLACEMENT THERAPY
     Dosage: UNK
     Route: 062
     Dates: start: 2003, end: 201805

REACTIONS (5)
  - Hormone level abnormal [None]
  - Product physical issue [Not Recovered/Not Resolved]
  - Product adhesion issue [None]
  - Drug withdrawal syndrome [None]
  - Patient dissatisfaction with device [None]

NARRATIVE: CASE EVENT DATE: 201805
